FAERS Safety Report 8169718-1 (Version None)
Quarter: 2012Q1

REPORT INFORMATION
  Report Type: 
  Country: None (occurrence: None)
  Receive Date: 20120228
  Receipt Date: 20120216
  Transmission Date: 20120608
  Serious: Yes (Hospitalization)
  Sender: FDA-Public Use
  Company Number: CA-JNJFOC-20120209121

PATIENT
  Sex: Male
  Weight: 96 kg

DRUGS (2)
  1. REMICADE [Suspect]
     Indication: PRODUCT USED FOR UNKNOWN INDICATION
     Route: 042
     Dates: start: 20120216
  2. REMICADE [Suspect]
     Route: 042
     Dates: start: 20110127

REACTIONS (7)
  - CHILLS [None]
  - URTICARIA [None]
  - DYSPNOEA [None]
  - INFUSION RELATED REACTION [None]
  - RESPIRATORY RATE INCREASED [None]
  - HYPERTENSION [None]
  - MUSCLE SPASMS [None]
